FAERS Safety Report 8307640-8 (Version None)
Quarter: 2012Q2

REPORT INFORMATION
  Report Type: 
  Country: None (occurrence: None)
  Receive Date: 20120424
  Receipt Date: 20120416
  Transmission Date: 20120825
  Serious: Yes (Hospitalization, Other)
  Sender: FDA-Public Use
  Company Number: US-JNJFOC-20111203508

PATIENT
  Sex: Female

DRUGS (12)
  1. TOPAMAX [Suspect]
     Indication: MIGRAINE
     Route: 048
     Dates: start: 20020401
  2. AMOXICILLIN [Suspect]
     Indication: URINARY TRACT INFECTION
     Route: 065
  3. DURAGESIC-100 [Suspect]
     Indication: PAIN
     Route: 062
  4. SYNTHROID [Suspect]
     Indication: GOITRE
     Route: 048
  5. LORTAB [Suspect]
     Indication: PAIN
     Route: 065
  6. MACRODANTIN [Suspect]
     Indication: PRODUCT USED FOR UNKNOWN INDICATION
     Route: 048
  7. ATENOLOL [Suspect]
     Indication: HYPERTENSION
     Route: 048
  8. CYTOMEL [Suspect]
     Indication: PRODUCT USED FOR UNKNOWN INDICATION
     Route: 048
  9. PHENOBARBITAL TAB [Suspect]
     Indication: ECLAMPSIA
     Route: 065
  10. DOXYLAMINE SUCCINATE [Suspect]
     Indication: PRODUCT USED FOR UNKNOWN INDICATION
     Route: 065
  11. EFFEXOR [Suspect]
     Indication: FIBROMYALGIA
     Route: 048
     Dates: start: 20020101, end: 20020801
  12. SOMA [Suspect]
     Indication: PAIN
     Route: 048

REACTIONS (3)
  - PREMATURE LABOUR [None]
  - ANXIETY [None]
  - MATERNAL EXPOSURE DURING PREGNANCY [None]
